FAERS Safety Report 20521302 (Version 4)
Quarter: 2022Q2

REPORT INFORMATION
  Report Type: Spontaneous
  Country: CO (occurrence: CO)
  Receive Date: 20220226
  Receipt Date: 20220518
  Transmission Date: 20220720
  Serious: Yes (Other)
  Sender: FDA-Public Use
  Company Number: CO-AMGEN-COLSP2022030515

PATIENT
  Age: 41 Year
  Sex: Female
  Weight: 74 kg

DRUGS (7)
  1. PEGFILGRASTIM [Suspect]
     Active Substance: PEGFILGRASTIM
     Indication: Breast cancer
     Dosage: 6 MILLIGRAM, Q3WK
     Route: 058
     Dates: start: 20220216
  2. PEGFILGRASTIM [Suspect]
     Active Substance: PEGFILGRASTIM
     Dosage: 6 MILLIGRAM, Q3WK
     Route: 058
  3. CYCLOPHOSPHAMIDE [Concomitant]
     Active Substance: CYCLOPHOSPHAMIDE
     Indication: Breast cancer
     Dosage: 1100 MILLIGRAM, Q3WK
     Route: 042
     Dates: start: 20210217
  4. DOXORUBICIN [Concomitant]
     Active Substance: DOXORUBICIN
     Indication: Breast cancer
     Dosage: 110 MILLIGRAM, Q3WK
     Route: 042
     Dates: start: 20210217
  5. ONDANSETRON [Concomitant]
     Active Substance: ONDANSETRON
     Dosage: 16 MILLIGRAM
     Route: 042
  6. DEXAMETHASONE [Concomitant]
     Active Substance: DEXAMETHASONE
     Dosage: 16 MILLIGRAM
     Route: 042
  7. PACLITAXEL [Concomitant]
     Active Substance: PACLITAXEL

REACTIONS (4)
  - Syncope [Unknown]
  - Chest pain [Unknown]
  - Hyperhidrosis [Unknown]
  - Device adhesion issue [Unknown]

NARRATIVE: CASE EVENT DATE: 20220217
